FAERS Safety Report 13762542 (Version 2)
Quarter: 2017Q3

REPORT INFORMATION
  Report Type: Spontaneous
  Country: US (occurrence: US)
  Receive Date: 20170718
  Receipt Date: 20170720
  Transmission Date: 20171127
  Serious: No
  Sender: FDA-Public Use
  Company Number: US-PFIZER INC-2017309933

PATIENT
  Age: 75 Year
  Sex: Male
  Weight: 149.69 kg

DRUGS (1)
  1. NEURONTIN [Suspect]
     Active Substance: GABAPENTIN
     Indication: NERVE INJURY
     Dosage: 25MG OR 50MG; DOES NOT KNOW FURTHER

REACTIONS (6)
  - Drug ineffective for unapproved indication [Unknown]
  - Muscular weakness [Unknown]
  - Dysstasia [Unknown]
  - Tremor [Unknown]
  - Gait disturbance [Unknown]
  - Fall [Unknown]
